FAERS Safety Report 5331109-6 (Version None)
Quarter: 2007Q2

REPORT INFORMATION
  Report Type: 
  Country: None (occurrence: None)
  Receive Date: 20070517
  Receipt Date: 20070517
  Transmission Date: 20071010
  Serious: No
  Sender: FDA-Public Use
  Company Number: None

PATIENT
  Age: 57 Year
  Sex: Female
  Weight: 61.2356 kg

DRUGS (1)
  1. ELMIRON [Suspect]
     Indication: CYSTITIS INTERSTITIAL
     Dosage: 100MG UP TO TID PO
     Route: 048
     Dates: start: 20050623, end: 20070420

REACTIONS (7)
  - CIRCADIAN RHYTHM SLEEP DISORDER [None]
  - DYSGEUSIA [None]
  - IMPAIRED DRIVING ABILITY [None]
  - IMPAIRED WORK ABILITY [None]
  - INSOMNIA [None]
  - PHARMACEUTICAL PRODUCT COMPLAINT [None]
  - SOMNOLENCE [None]
